FAERS Safety Report 4913560-9 (Version None)
Quarter: 2006Q1

REPORT INFORMATION
  Report Type: 
  Country: None (occurrence: None)
  Receive Date: 20060210
  Receipt Date: 20060124
  Transmission Date: 20060701
  Serious: Yes (Hospitalization)
  Sender: FDA-Public Use
  Company Number: S06-FRA-00410-01

PATIENT
  Age: 51 Year
  Sex: Female

DRUGS (8)
  1. CITALOPRAM HYDROBROMIDE [Suspect]
     Dosage: 20 MG QD PO
     Route: 048
     Dates: start: 19980101, end: 20060101
  2. CITALOPRAM HYDROBROMIDE [Suspect]
     Dosage: 10 MG QD PO
     Route: 048
     Dates: start: 20060101
  3. TEGRETOL [Suspect]
     Dosage: 200 MG QD PO
     Route: 048
     Dates: start: 20060105, end: 20060107
  4. PREDNISOLONE [Suspect]
     Indication: FACIAL NEURALGIA
     Dosage: 1 QD PO
     Route: 048
     Dates: start: 20060105, end: 20060107
  5. VIOXX [Suspect]
     Indication: SELF-MEDICATION
     Dosage: 1 QD PO
     Route: 048
     Dates: start: 20060104, end: 20060105
  6. CIPROFLOXACIN HCL [Suspect]
     Indication: SELF-MEDICATION
     Dosage: 1 QD PO
     Route: 048
     Dates: start: 20060104, end: 20060105
  7. TRANXENE [Concomitant]
  8. VITAMIN CAP [Concomitant]

REACTIONS (8)
  - CERVICAL ROOT PAIN [None]
  - EMOTIONAL DISORDER [None]
  - FACIAL NEURALGIA [None]
  - FATIGUE [None]
  - HYPONATRAEMIA [None]
  - INTRACRANIAL PRESSURE INCREASED [None]
  - SELF-MEDICATION [None]
  - TOOTH ABSCESS [None]
